FAERS Safety Report 9838553 (Version 1)
Quarter: 2014Q1

REPORT INFORMATION
  Report Type: Spontaneous
  Country: US (occurrence: US)
  Receive Date: 20140123
  Receipt Date: 20140123
  Transmission Date: 20141002
  Serious: Yes (Other)
  Sender: FDA-Public Use
  Company Number: US-ASTELLAS-2013US007957

PATIENT
  Sex: 0

DRUGS (1)
  1. TARCEVA [Suspect]
     Indication: LUNG NEOPLASM MALIGNANT
     Dosage: UNK
     Route: 048

REACTIONS (4)
  - Malaise [Unknown]
  - Dry skin [Unknown]
  - Onychomadesis [Unknown]
  - Malignant neoplasm progression [Unknown]
